FAERS Safety Report 7927106-4 (Version None)
Quarter: 2011Q4

REPORT INFORMATION
  Report Type: 
  Country: None (occurrence: None)
  Receive Date: 20111118
  Receipt Date: 20111109
  Transmission Date: 20120403
  Serious: Yes (Hospitalization)
  Sender: FDA-Public Use
  Company Number: RS-JNJFOC-20111012909

PATIENT
  Age: 21 Year
  Sex: Male

DRUGS (6)
  1. RISPERIDONE [Suspect]
     Indication: PSYCHOTIC DISORDER
     Route: 030
     Dates: start: 20110930, end: 20111010
  2. RISPERIDONE [Suspect]
     Route: 048
  3. RISPERIDONE [Suspect]
     Indication: SCHIZOPHRENIA
     Route: 030
     Dates: start: 20110930, end: 20111010
  4. HALDOL [Suspect]
     Indication: SCHIZOPHRENIA
     Route: 065
  5. RISPERIDONE [Suspect]
     Indication: SCHIZOPHRENIA
     Route: 048
  6. PAROXETINE HCL [Concomitant]
     Indication: DEPRESSIVE SYMPTOM
     Route: 065
     Dates: end: 20111010

REACTIONS (3)
  - EXTRAPYRAMIDAL DISORDER [None]
  - PSYCHOTIC DISORDER [None]
  - STUPOR [None]
